FAERS Safety Report 9773541 (Version 1)
Quarter: 2013Q4

REPORT INFORMATION
  Report Type: Spontaneous
  Country: NO (occurrence: None)
  Receive Date: 20131217
  Receipt Date: 20131217
  Transmission Date: 20140711
  Serious: Yes (Hospitalization)
  Sender: FDA-Public Use
  Company Number: VA;_02862_2013

PATIENT
  Age: 90 Year
  Sex: Male

DRUGS (9)
  1. METOPROLOL [Suspect]
     Indication: BLOOD PRESSURE INCREASED
     Route: 048
     Dates: start: 201302
  2. METOPROLOL [Suspect]
     Route: 048
     Dates: start: 201302
  3. BURINEX [Concomitant]
  4. NITROGLYCERINE [Concomitant]
  5. SPIRIX [Concomitant]
  6. SOMAC [Concomitant]
  7. ATACAND [Concomitant]
  8. ALBYL [Concomitant]
  9. NEURONTIN [Concomitant]

REACTIONS (5)
  - Blood pressure fluctuation [None]
  - Dizziness [None]
  - Balance disorder [None]
  - Myocardial infarction [None]
  - Product quality issue [None]
